FAERS Safety Report 10224211 (Version 1)
Quarter: 2014Q2

REPORT INFORMATION
  Report Type: Spontaneous
  Country: US (occurrence: US)
  Receive Date: 20140609
  Receipt Date: 20140609
  Transmission Date: 20141212
  Serious: No
  Sender: FDA-Public Use
  Company Number: US-PFIZER INC-2014153951

PATIENT
  Age: 51 Year
  Sex: Female
  Weight: 104 kg

DRUGS (9)
  1. ALAVERT [Suspect]
     Indication: HYPERSENSITIVITY
     Dosage: UNK, AS NEEDED
  2. ALAVERT [Suspect]
     Indication: RHINORRHOEA
  3. ALAVERT [Suspect]
     Indication: EYE PRURITUS
  4. WELLBUTRIN XL [Concomitant]
     Indication: DEPRESSION
     Dosage: 450 MG (ONE 300MG AND ONE 150 MG), DAILY
  5. AMPHETAMINE AND DEXTROAMPHETAMINE [Concomitant]
     Indication: ATTENTION DEFICIT/HYPERACTIVITY DISORDER
     Dosage: 20 MG, DAILY
  6. VYVANSE [Concomitant]
     Dosage: UNK, ONCE DAILY (IN THE MORNING)
  7. BUSPIRONE [Concomitant]
     Indication: ANXIETY
     Dosage: 10 MG, AS NEEDED
  8. LAMOTRIGINE [Concomitant]
     Indication: AFFECTIVE DISORDER
     Dosage: 400 MG (TWO TABLETS OF 200MG), ONCE DAILY
  9. IBUPROFEN [Concomitant]
     Indication: PAIN
     Dosage: 800 MG, AS NEEDED

REACTIONS (1)
  - Drug ineffective [Unknown]
